FAERS Safety Report 8046683-9 (Version None)
Quarter: 2012Q1

REPORT INFORMATION
  Report Type: 
  Country: None (occurrence: None)
  Receive Date: 20120116
  Receipt Date: 20120111
  Transmission Date: 20120608
  Serious: Yes (Life-Threatening)
  Sender: FDA-Public Use
  Company Number: DE-BRISTOL-MYERS SQUIBB COMPANY-16325656

PATIENT
  Age: 60 Year
  Sex: Male
  Weight: 89 kg

DRUGS (3)
  1. CETUXIMAB [Suspect]
     Indication: NON-SMALL CELL LUNG CANCER
     Dosage: CETUXIMAB IV INFUSION,STRENGTH:5MG/ML LAST DOSE ON 14DEC2011 RESTART ON 28DEC2011
     Route: 042
     Dates: start: 20111214
  2. CISPLATIN [Suspect]
     Indication: NON-SMALL CELL LUNG CANCER
     Dosage: LAST DOSE ON 14DEC2011 DOSE REDUCED TO 60MG/M2
     Route: 042
     Dates: start: 20111214
  3. GEMCITABINE [Suspect]
     Indication: NON-SMALL CELL LUNG CANCER
     Dosage: DAY 1 AND D8 OF EACH 3WK CYCLE LAST DOSE ON 14DEC2011 DOSE REDUCED TO 1200 MG/M2
     Route: 042
     Dates: start: 20111214

REACTIONS (1)
  - NEUTROPENIA [None]
